FAERS Safety Report 16937464 (Version 2)
Quarter: 2019Q4

REPORT INFORMATION
  Report Type: Spontaneous
  Country: US (occurrence: US)
  Receive Date: 20191018
  Receipt Date: 20191023
  Transmission Date: 20200122
  Serious: Yes (Death, Congenital Anomaly, Other)
  Sender: FDA-Public Use
  Company Number: US-BAUSCH-BL-2019-058384

PATIENT
  Age: 0 Year
  Sex: Male
  Weight: 2.27 kg

DRUGS (2)
  1. ZIRGAN [Suspect]
     Active Substance: GANCICLOVIR
     Indication: PRODUCT USED FOR UNKNOWN INDICATION
     Dates: start: 201510, end: 201510
  2. ZIRGAN [Suspect]
     Active Substance: GANCICLOVIR
     Dates: start: 201510, end: 201510

REACTIONS (3)
  - Premature baby [Fatal]
  - Mediastinal effusion [Fatal]
  - Foetal exposure during pregnancy [Unknown]

NARRATIVE: CASE EVENT DATE: 2015
